FAERS Safety Report 17305159 (Version 2)
Quarter: 2020Q1

REPORT INFORMATION
  Report Type: Spontaneous
  Country: US (occurrence: US)
  Receive Date: 20200123
  Receipt Date: 20200131
  Transmission Date: 20200409
  Serious: No
  Sender: FDA-Public Use
  Company Number: US-PFIZER INC-2020031285

PATIENT
  Age: 42 Year
  Sex: Female
  Weight: 54.43 kg

DRUGS (2)
  1. PREMPRO [Suspect]
     Active Substance: ESTROGENS, CONJUGATED\MEDROXYPROGESTERONE ACETATE
     Indication: MENOPAUSAL DISORDER
     Dosage: 1 DF, 1X/DAY, (0.45MG/1.5MG ONCE A DAY)
     Dates: start: 2015
  2. PREMPRO [Suspect]
     Active Substance: ESTROGENS, CONJUGATED\MEDROXYPROGESTERONE ACETATE
     Dosage: 1 DF, ALTERNATE DAY,(SHE IS HAVING TO TAKE ONE PILL EVERY OTHER DAY)

REACTIONS (3)
  - Intentional product misuse [Unknown]
  - Feeling abnormal [Unknown]
  - Migraine [Unknown]
